FAERS Safety Report 5061717-1 (Version None)
Quarter: 2006Q3

REPORT INFORMATION
  Report Type: 
  Country: None (occurrence: None)
  Receive Date: 20060726
  Receipt Date: 20060630
  Transmission Date: 20061208
  Serious: Yes (Hospitalization)
  Sender: FDA-Public Use
  Company Number: FR-RB-3519-2006

PATIENT
  Age: 35 Year
  Sex: Male

DRUGS (3)
  1. BUPRENORPHINE HCL [Suspect]
     Route: 048
     Dates: start: 20010101, end: 20060522
  2. DISULFIRAM [Suspect]
     Dosage: DOSAGE UNKNOWN
     Route: 048
     Dates: start: 20060501, end: 20060521
  3. OLANZAPINE [Suspect]
     Indication: DRUG USE FOR UNKNOWN INDICATION
     Route: 048
     Dates: end: 20060521

REACTIONS (8)
  - DYSPHONIA [None]
  - DYSPNOEA [None]
  - FACIAL PALSY [None]
  - NYSTAGMUS [None]
  - PARAESTHESIA [None]
  - PARESIS [None]
  - POLYNEUROPATHY [None]
  - REFLEXES ABNORMAL [None]
